FAERS Safety Report 17262900 (Version 1)
Quarter: 2020Q1

REPORT INFORMATION
  Report Type: Spontaneous
  Country: DK (occurrence: DK)
  Receive Date: 20200113
  Receipt Date: 20200113
  Transmission Date: 20200409
  Serious: Yes (Hospitalization)
  Sender: FDA-Public Use
  Company Number: NVSC2020DK005233

PATIENT
  Age: 76 Year
  Sex: Female

DRUGS (2)
  1. ANCOZAN COMP [Suspect]
     Active Substance: HYDROCHLOROTHIAZIDE\LOSARTAN POTASSIUM
     Indication: HYPERTENSION
     Dosage: 1 DF, QD
     Route: 048
     Dates: start: 201706, end: 20190917
  2. VIBRADOX [Suspect]
     Active Substance: DOXYCYCLINE
     Indication: DERMATITIS ATOPIC
     Dosage: 100 MG, QD
     Route: 048
     Dates: start: 20190912

REACTIONS (1)
  - Hyponatraemia [Recovering/Resolving]

NARRATIVE: CASE EVENT DATE: 20190917
